FAERS Safety Report 13609137 (Version 1)
Quarter: 2017Q2

REPORT INFORMATION
  Report Type: Spontaneous
  Country: CN (occurrence: CN)
  Receive Date: 20170602
  Receipt Date: 20170602
  Transmission Date: 20170830
  Serious: Yes (Hospitalization)
  Sender: FDA-Public Use
  Company Number: CN-ELI_LILLY_AND_COMPANY-CN201705009775

PATIENT
  Age: 80 Year
  Sex: Male
  Weight: 46 kg

DRUGS (12)
  1. HUMULIN 70/30 [Suspect]
     Active Substance: INSULIN HUMAN
     Indication: DIABETES MELLITUS
     Dosage: 22 U OR 32 U, DAILY
     Route: 058
     Dates: start: 20170101, end: 20170202
  2. HUMULIN 70/30 [Suspect]
     Active Substance: INSULIN HUMAN
     Dosage: 20 U, EACH MORNING
     Route: 058
  3. ADALAT [Concomitant]
     Active Substance: NIFEDIPINE
     Indication: HYPERTENSION
     Dosage: UNK UNK, DAILY
     Route: 048
     Dates: start: 19970101, end: 20170223
  4. HUMULIN 70/30 [Suspect]
     Active Substance: INSULIN HUMAN
     Dosage: 12 IU, EACH EVENING
     Route: 058
     Dates: start: 20170205
  5. HUMULIN 70/30 [Suspect]
     Active Substance: INSULIN HUMAN
     Dosage: 14 IU, EACH EVENING
     Route: 058
     Dates: start: 20170207
  6. GLUCOPHAGE [Suspect]
     Active Substance: METFORMIN HYDROCHLORIDE
     Indication: DIABETES MELLITUS
     Dosage: UNK UNK, TID
     Route: 048
     Dates: start: 20160901, end: 20170223
  7. HUMULIN 70/30 [Suspect]
     Active Substance: INSULIN HUMAN
     Dosage: 10 U, EACH EVENING
     Route: 058
  8. HUMULIN 70/30 [Suspect]
     Active Substance: INSULIN HUMAN
     Dosage: 20 IU, EACH MORNING
     Route: 058
     Dates: start: 20170205
  9. FOSINOPRIL SODIUM. [Concomitant]
     Active Substance: FOSINOPRIL SODIUM
     Indication: HYPERTENSION
     Dosage: UNK UNK, DAILY
     Route: 048
     Dates: start: 19970101, end: 20170223
  10. HUMULIN 70/30 [Suspect]
     Active Substance: INSULIN HUMAN
     Dosage: 22 IU, EACH MORNING
     Route: 058
     Dates: start: 20170207
  11. ASPIRIN                            /00002701/ [Concomitant]
     Active Substance: ASPIRIN
     Indication: LACUNAR INFARCTION
     Dosage: UNK, DAILY
     Route: 048
     Dates: start: 20120101, end: 20170223
  12. GLIPIZIDE. [Suspect]
     Active Substance: GLIPIZIDE
     Indication: DIABETES MELLITUS
     Dosage: UNK UNK, DAILY
     Route: 048
     Dates: start: 20160901, end: 20170223

REACTIONS (4)
  - Hypoglycaemic encephalopathy [Recovering/Resolving]
  - Mixed dementia [Recovering/Resolving]
  - Blood glucose increased [Recovering/Resolving]
  - Hypertension [Recovering/Resolving]

NARRATIVE: CASE EVENT DATE: 20170204
